FAERS Safety Report 5863856-1 (Version None)
Quarter: 2008Q3

REPORT INFORMATION
  Report Type: 
  Country: None (occurrence: None)
  Receive Date: 20080820
  Receipt Date: 20080808
  Transmission Date: 20090109
  Serious: No
  Sender: FDA-Public Use
  Company Number: WSDF_00745

PATIENT
  Sex: Male

DRUGS (1)
  1. WINRHO SDF [Suspect]

REACTIONS (3)
  - CHILLS [None]
  - HAEMATURIA [None]
  - PYREXIA [None]
